FAERS Safety Report 25626886 (Version 2)
Quarter: 2025Q3

REPORT INFORMATION
  Report Type: Spontaneous
  Country: JP (occurrence: JP)
  Receive Date: 20250731
  Receipt Date: 20250806
  Transmission Date: 20251021
  Serious: Yes (Death, Other)
  Sender: PFIZER
  Company Number: JP-PFIZER INC-PV202500092082

PATIENT
  Age: 70 Year
  Sex: Male

DRUGS (8)
  1. BEVACIZUMAB [Suspect]
     Active Substance: BEVACIZUMAB
     Indication: Chemotherapy
  2. MEROPENEM [Suspect]
     Active Substance: MEROPENEM
     Indication: Pseudomonas infection
     Dosage: 1 G, 2X/DAY
  3. MEROPENEM [Suspect]
     Active Substance: MEROPENEM
     Indication: Enterococcal infection
  4. ATEZOLIZUMAB [Suspect]
     Active Substance: ATEZOLIZUMAB
     Indication: Chemotherapy
  5. DAPTOMYCIN [Suspect]
     Active Substance: DAPTOMYCIN
     Indication: Pseudomonas infection
     Dosage: 350 MG, 1X/DAY
  6. DAPTOMYCIN [Suspect]
     Active Substance: DAPTOMYCIN
     Indication: Enterococcal infection
  7. CEFMETAZOLE [Concomitant]
     Active Substance: CEFMETAZOLE
     Dosage: 1 G, 3X/DAY FOR 3 DAYS
  8. PIPERACILLIN SODIUM\TAZOBACTAM SODIUM [Concomitant]
     Active Substance: PIPERACILLIN SODIUM\TAZOBACTAM SODIUM
     Dosage: 4.5 G, 3X/DAY FOR NEXT 4 DAYS

REACTIONS (1)
  - Acquired factor V deficiency [Fatal]
